FAERS Safety Report 7973622-9 (Version None)
Quarter: 2011Q4

REPORT INFORMATION
  Report Type: 
  Country: None (occurrence: None)
  Receive Date: 20111202
  Receipt Date: 20111123
  Transmission Date: 20120403
  Serious: Yes (Hospitalization)
  Sender: FDA-Public Use
  Company Number: WAES 1111USA03254

PATIENT
  Age: 78 Year
  Sex: Male

DRUGS (8)
  1. TAB ENZASTAURIN HYDROCHLORIDE [Suspect]
     Indication: MULTIPLE MYELOMA
     Dosage: 375 MG/TID/PO, 250 MG/BID/PO
     Route: 048
     Dates: start: 20090423
  2. TAB ENZASTAURIN HYDROCHLORIDE [Suspect]
     Indication: MULTIPLE MYELOMA
     Dosage: 375 MG/TID/PO, 250 MG/BID/PO
     Route: 048
     Dates: start: 20090422, end: 20090422
  3. DECADRON [Suspect]
     Dosage: 20 MG/DAILY/PO
     Route: 048
     Dates: start: 20110225
  4. MODOPAR [Concomitant]
  5. CAPTOPRIL AND HYDROCHLOROTHIAZIDE [Concomitant]
  6. DOMPERIDONE [Concomitant]
  7. STALEVO 100 [Concomitant]
  8. OMEPRAZOLE [Concomitant]

REACTIONS (7)
  - MUSCULAR WEAKNESS [None]
  - DIARRHOEA [None]
  - DYSPNOEA [None]
  - ASTHENIA [None]
  - GENERAL PHYSICAL HEALTH DETERIORATION [None]
  - TOXICITY TO VARIOUS AGENTS [None]
  - COUGH [None]
